FAERS Safety Report 25232507 (Version 1)
Quarter: 2025Q2

REPORT INFORMATION
  Report Type: Spontaneous
  Country: US (occurrence: US)
  Receive Date: 20250423
  Receipt Date: 20250423
  Transmission Date: 20250716
  Serious: Yes (Other)
  Sender: AMGEN
  Company Number: US-AMGEN-USASP2025076971

PATIENT
  Age: 51 Year
  Sex: Male

DRUGS (5)
  1. PREDNISONE [Suspect]
     Active Substance: PREDNISONE
     Indication: Colitis ulcerative
     Dosage: 20 MILLIGRAM, BID
     Route: 065
  2. MESALAMINE [Concomitant]
     Active Substance: MESALAMINE
     Indication: Colitis ulcerative
     Dosage: 800 MILLIGRAM, TID
  3. MESALAMINE [Concomitant]
     Active Substance: MESALAMINE
     Dosage: 1.6 GRAM, TID
  4. HYDROCORTISONE [Concomitant]
     Active Substance: HYDROCORTISONE
     Dosage: 100 MILLIGRAM, Q8H
     Route: 040
  5. VEDOLIZUMAB [Concomitant]
     Active Substance: VEDOLIZUMAB

REACTIONS (5)
  - Myocarditis [Recovering/Resolving]
  - Acute myocardial infarction [Unknown]
  - Mitral valve incompetence [Unknown]
  - Coronary artery disease [Unknown]
  - Diastolic dysfunction [Unknown]
